FAERS Safety Report 4445869-X (Version None)
Quarter: 2004Q3

REPORT INFORMATION
  Report Type: 
  Country: None (occurrence: None)
  Receive Date: 20040907
  Receipt Date: 20040826
  Transmission Date: 20050211
  Serious: Yes (Other)
  Sender: FDA-Public Use
  Company Number: HQWYE126610AUG04

PATIENT
  Age: 57 Year
  Sex: Male

DRUGS (3)
  1. CORDARONE [Suspect]
     Indication: ARRHYTHMIA
     Dosage: 100 MG 1X PER 1 DAY ORAL
     Route: 048
     Dates: start: 20020101
  2. DELIX PLUS (HYDROCHLOROTHIAZIDE/RAMIPRIL) [Concomitant]
  3. AMITRIPTYLINE HCL [Concomitant]

REACTIONS (5)
  - BLOOD THYROID STIMULATING HORMONE DECREASED [None]
  - HYPERTHYROIDISM [None]
  - TACHYARRHYTHMIA [None]
  - THYROXINE FREE DECREASED [None]
  - TRI-IODOTHYRONINE FREE ABNORMAL [None]
